FAERS Safety Report 24576196 (Version 4)
Quarter: 2024Q4

REPORT INFORMATION
  Report Type: Other
  Country: US (occurrence: US)
  Receive Date: 20241104
  Receipt Date: 20241202
  Transmission Date: 20250115
  Serious: Yes (Other)
  Sender: TRAVERE THERAPEUTICS
  Company Number: US-TRAVERE-2024TVT01075

PATIENT
  Age: 34 Year
  Sex: Male

DRUGS (2)
  1. FILSPARI [Suspect]
     Active Substance: SPARSENTAN
     Indication: IgA nephropathy
     Dosage: 1 TABLET ONCE A DAY, 1-14 DAYS
     Route: 048
     Dates: start: 20241021, end: 20241103
  2. FILSPARI [Suspect]
     Active Substance: SPARSENTAN
     Indication: Haematuria
     Dosage: 2 TABLETS ONCE A DAY, 15-30 DAYS
     Route: 048
     Dates: start: 20241104

REACTIONS (3)
  - Angioedema [Recovered/Resolved]
  - Blood pressure increased [Unknown]
  - Pruritus [Unknown]

NARRATIVE: CASE EVENT DATE: 20241023
